FAERS Safety Report 7183436-8 (Version None)
Quarter: 2010Q4

REPORT INFORMATION
  Report Type: 
  Country: None (occurrence: None)
  Receive Date: 20101222
  Receipt Date: 20101217
  Transmission Date: 20110411
  Serious: Yes (Hospitalization)
  Sender: FDA-Public Use
  Company Number: KR-SANOFI-AVENTIS-2010SA066316

PATIENT
  Age: 48 Year
  Sex: Male
  Weight: 66 kg

DRUGS (10)
  1. AFLIBERCEPT [Suspect]
     Indication: NON-SMALL CELL LUNG CANCER METASTATIC
     Route: 042
     Dates: start: 20091013, end: 20091013
  2. AFLIBERCEPT [Suspect]
     Route: 042
     Dates: start: 20101006, end: 20101006
  3. DOCETAXEL [Suspect]
     Indication: NON-SMALL CELL LUNG CANCER METASTATIC
     Route: 042
     Dates: start: 20091013, end: 20091013
  4. DOCETAXEL [Suspect]
     Route: 042
     Dates: start: 20101006, end: 20101006
  5. BETADINE ^PURDUE^ [Concomitant]
     Dates: start: 20091012
  6. TANTUM [Concomitant]
     Dates: start: 20091012
  7. CORTICOSTEROIDS [Concomitant]
  8. ATORVASTATIN [Concomitant]
     Dates: start: 20100625
  9. MEGESTROL ACETATE [Concomitant]
     Dates: start: 20100816
  10. MINOCIN [Concomitant]
     Dates: start: 20100927

REACTIONS (1)
  - PROTEINURIA [None]
